FAERS Safety Report 5292012-3 (Version None)
Quarter: 2007Q2

REPORT INFORMATION
  Report Type: 
  Country: None (occurrence: None)
  Receive Date: 20070403
  Receipt Date: 20070322
  Transmission Date: 20071010
  Serious: Yes (Death, Hospitalization)
  Sender: FDA-Public Use
  Company Number: E3810-00764-SOL-US

PATIENT
  Age: 48 Year
  Sex: Male
  Weight: 128 kg

DRUGS (6)
  1. ACIPHEX [Suspect]
     Indication: GASTROOESOPHAGEAL REFLUX DISEASE
     Dosage: 20 MG, ORAL
     Route: 048
     Dates: start: 20030201
  2. LASIX [Concomitant]
  3. TENORMIN [Concomitant]
  4. ZOLOFT [Concomitant]
  5. RELAFEN [Concomitant]
  6. VERAPAMIL [Concomitant]

REACTIONS (1)
  - RENAL FAILURE ACUTE [None]
